FAERS Safety Report 15345290 (Version 2)
Quarter: 2018Q3

REPORT INFORMATION
  Report Type: Spontaneous
  Country: AR (occurrence: AR)
  Receive Date: 20180903
  Receipt Date: 20180917
  Transmission Date: 20181010
  Serious: Yes (Other)
  Sender: FDA-Public Use
  Company Number: AR-PFIZER INC-2018351485

PATIENT
  Age: 71 Year
  Sex: Female

DRUGS (1)
  1. XELJANZ [Suspect]
     Active Substance: TOFACITINIB CITRATE
     Indication: RHEUMATOID ARTHRITIS
     Dosage: 5 MG, 2X/DAY
     Dates: start: 20180320

REACTIONS (10)
  - Weight decreased [Unknown]
  - Chest injury [Unknown]
  - Device related infection [Unknown]
  - Fall [Unknown]
  - Oropharyngeal pain [Unknown]
  - Mouth haemorrhage [Unknown]
  - Device dislocation [Unknown]
  - Insomnia [Unknown]
  - Ear pain [Unknown]
  - Anaemia [Unknown]

NARRATIVE: CASE EVENT DATE: 2018
